FAERS Safety Report 9200026 (Version 2)
Quarter: 2013Q2

REPORT INFORMATION
  Report Type: Report from Study
  Country: AU (occurrence: AU)
  Receive Date: 20130329
  Receipt Date: 20130502
  Transmission Date: 20140414
  Serious: Yes (Death, Hospitalization)
  Sender: FDA-Public Use
  Company Number: AU-GLAXOSMITHKLINE-B0878635A

PATIENT
  Age: 45 Year
  Sex: Female
  Weight: 59.5 kg

DRUGS (1)
  1. VOTRIENT [Suspect]
     Indication: ANGIOSARCOMA
     Route: 065
     Dates: start: 20130202, end: 20130226

REACTIONS (1)
  - Disease progression [Fatal]
